FAERS Safety Report 24288847 (Version 1)
Quarter: 2024Q3

REPORT INFORMATION
  Report Type: Spontaneous
  Country: US (occurrence: US)
  Receive Date: 20240906
  Receipt Date: 20240906
  Transmission Date: 20241017
  Serious: No
  Sender: Haleon PLC
  Company Number: US-HALEON-2195394

PATIENT

DRUGS (1)
  1. NICODERM CQ [Suspect]
     Active Substance: NICOTINE
     Indication: Product used for unknown indication
     Dosage: EXPDATE:20261231

REACTIONS (8)
  - Application site pain [Unknown]
  - Skin mass [Unknown]
  - Erythema [Unknown]
  - Rash erythematous [Unknown]
  - Skin irritation [Unknown]
  - Dermatitis [Unknown]
  - Skin swelling [Unknown]
  - Application site vesicles [Unknown]
